FAERS Safety Report 25347244 (Version 1)
Quarter: 2025Q2

REPORT INFORMATION
  Report Type: Spontaneous
  Country: US (occurrence: US)
  Receive Date: 20250522
  Receipt Date: 20250522
  Transmission Date: 20250717
  Serious: No
  Sender: PFIZER
  Company Number: US-PFIZER INC-PV202500060524

PATIENT
  Age: 12 Year
  Sex: Male

DRUGS (4)
  1. LITFULO [Suspect]
     Active Substance: RITLECITINIB TOSYLATE
     Indication: Alopecia areata
     Dates: start: 202403
  2. MINOXIDIL [Suspect]
     Active Substance: MINOXIDIL
     Indication: Alopecia areata
     Route: 048
  3. MOMETASONE [Concomitant]
     Active Substance: MOMETASONE
     Indication: Alopecia areata
     Route: 061
  4. CHOLECALCIFEROL [Concomitant]
     Active Substance: CHOLECALCIFEROL

REACTIONS (1)
  - Condition aggravated [Unknown]
